FAERS Safety Report 17051925 (Version 1)
Quarter: 2019Q4

REPORT INFORMATION
  Report Type: Spontaneous
  Country: IN (occurrence: IN)
  Receive Date: 20191120
  Receipt Date: 20191120
  Transmission Date: 20200122
  Serious: Yes (Hospitalization, Other)
  Sender: FDA-Public Use
  Company Number: IN-IPCA LABORATORIES LIMITED-IPC-2019-IN-001909

PATIENT

DRUGS (8)
  1. NAPROXEN. [Suspect]
     Active Substance: NAPROXEN
     Indication: PYREXIA
     Dosage: 500 MILLIGRAM, PRN
     Route: 065
  2. NAPROXEN. [Suspect]
     Active Substance: NAPROXEN
     Indication: PRURITUS
  3. PREDNISOLONE TABLETS [Suspect]
     Active Substance: PREDNISOLONE
     Indication: HYPERSENSITIVITY
     Dosage: 5 MILLIGRAM, QD
     Route: 065
  4. SULFASALAZINE TABLETS 1GM [Suspect]
     Active Substance: SULFASALAZINE
     Indication: ARTHRITIS
     Dosage: 1 GRAM, QD
     Route: 065
  5. CETRIZINE HYDROCHLORIDE 10 MG TABLETS [Suspect]
     Active Substance: CETIRIZINE HYDROCHLORIDE
     Indication: PRURITUS
     Dosage: 10 MILLIGRAM, BID
     Route: 065
  6. NAPROXEN. [Suspect]
     Active Substance: NAPROXEN
     Indication: CHILLS
  7. HYDROXYCHLOROQUINE [Suspect]
     Active Substance: HYDROXYCHLOROQUINE
     Indication: MALARIA
     Dosage: 200 MILLIGRAM, QD
     Route: 065
  8. NAPROXEN. [Suspect]
     Active Substance: NAPROXEN
     Indication: ARTHRALGIA

REACTIONS (4)
  - Maternal exposure during pregnancy [Unknown]
  - Hepatotoxicity [Recovered/Resolved]
  - Hepatosplenomegaly [Recovered/Resolved]
  - Cholelithiasis [Recovered/Resolved]
